FAERS Safety Report 18555873 (Version 1)
Quarter: 2020Q4

REPORT INFORMATION
  Report Type: Report from Study
  Country: TH (occurrence: TH)
  Receive Date: 20201127
  Receipt Date: 20201127
  Transmission Date: 20210114
  Serious: Yes (Other)
  Sender: FDA-Public Use
  Company Number: TH-ASTRAZENECA-2020SF53340

PATIENT
  Age: 63 Year
  Sex: Female

DRUGS (1)
  1. TAGRISSO [Suspect]
     Active Substance: OSIMERTINIB
     Indication: LUNG NEOPLASM MALIGNANT
     Route: 048
     Dates: start: 20190809, end: 2020

REACTIONS (1)
  - Drug resistance [Not Recovered/Not Resolved]

NARRATIVE: CASE EVENT DATE: 2020
